FAERS Safety Report 9350295 (Version 7)
Quarter: 2013Q4

REPORT INFORMATION
  Report Type: Report from Study
  Country: ES (occurrence: ES)
  Receive Date: 20130617
  Receipt Date: 20131126
  Transmission Date: 20140711
  Serious: Yes (Death, Life-Threatening, Hospitalization)
  Sender: FDA-Public Use
  Company Number: ES-ROCHE-1215014

PATIENT
  Age: 63 Year
  Sex: Male
  Weight: 55 kg

DRUGS (14)
  1. RITUXIMAB [Suspect]
     Indication: DIFFUSE LARGE B-CELL LYMPHOMA
     Dosage: DATE OF LAST DOSE PRIOR TO AE 03/APR/2013
     Route: 042
     Dates: start: 20130403
  2. RHUPH20/RITUXIMAB [Suspect]
     Indication: DIFFUSE LARGE B-CELL LYMPHOMA
     Dosage: LAST DOSE PRIOR TO SAE: 08/MAY/2013
     Route: 058
     Dates: start: 20130424
  3. CYCLOPHOSPHAMIDE [Suspect]
     Indication: DIFFUSE LARGE B-CELL LYMPHOMA
     Dosage: LAST DOSE PRIOR TO EVENT: 04/APR/2013
     Route: 065
     Dates: start: 20130404
  4. CYCLOPHOSPHAMIDE [Suspect]
     Dosage: LAST DOSE PRIOR TO SAE: 08/MAY/2013
     Route: 065
     Dates: start: 20130404
  5. DOXORUBICIN [Suspect]
     Indication: DIFFUSE LARGE B-CELL LYMPHOMA
     Dosage: LAST DOSE PRIOR TO SAE: 08/MAY/2013
     Route: 065
     Dates: start: 20130404
  6. DOXORUBICIN [Suspect]
     Dosage: LAST DOSE PRIOR TO SAE: 04/APR/2013
     Route: 065
     Dates: start: 20130404
  7. VINCRISTINE [Suspect]
     Indication: DIFFUSE LARGE B-CELL LYMPHOMA
     Dosage: LAST DOSE PRIOR TO SAE: 08/MAY/2013
     Route: 065
     Dates: start: 20130404
  8. VINCRISTINE [Suspect]
     Dosage: LAST DOSE PRIOR TO SAE: 04/APR/2013
     Route: 065
     Dates: start: 20130404
  9. PREDNISOLONE [Suspect]
     Indication: DIFFUSE LARGE B-CELL LYMPHOMA
     Dosage: LAST DOSE PRIOR TO EVENT ON 12/MAY/2013
     Route: 065
     Dates: start: 20130404
  10. PREDNISOLONE [Suspect]
     Dosage: LAST DOSE PRIOR TO SAE: 08/MAY/2013
     Route: 065
     Dates: start: 20130404
  11. PREDNISOLONE [Suspect]
     Dosage: LAST DOSE PRIOR TO SAE: 08/APR/2013
     Route: 065
     Dates: start: 20130404
  12. NEXIUM [Concomitant]
     Route: 048
     Dates: start: 20130326, end: 20130507
  13. ZYLORIC [Concomitant]
     Indication: PROPHYLAXIS
     Route: 048
     Dates: start: 20130326, end: 20130505
  14. LORAZEPAM [Concomitant]
     Route: 048
     Dates: start: 20030201

REACTIONS (3)
  - Peritonitis [Fatal]
  - Pancytopenia [Recovered/Resolved]
  - Febrile neutropenia [Not Recovered/Not Resolved]
